FAERS Safety Report 9114105 (Version 1)
Quarter: 2013Q1

REPORT INFORMATION
  Report Type: Spontaneous
  Country: US (occurrence: None)
  Receive Date: 20130220
  Receipt Date: 20130220
  Transmission Date: 20140127
  Serious: Yes (Hospitalization)
  Sender: FDA-Public Use
  Company Number: None

PATIENT
  Age: 81 Year
  Sex: Male

DRUGS (2)
  1. POTASSIUM CHLORIDE [Suspect]
     Route: 048
     Dates: start: 20100527, end: 20130204
  2. SPIRONOLACTONE [Suspect]
     Route: 048
     Dates: start: 20080908, end: 20130204

REACTIONS (1)
  - Hyperkalaemia [None]
